FAERS Safety Report 4594699-7 (Version None)
Quarter: 2005Q1

REPORT INFORMATION
  Report Type: 
  Country: None (occurrence: None)
  Receive Date: 20050301
  Receipt Date: 20050111
  Transmission Date: 20050727
  Serious: Yes (Other)
  Sender: FDA-Public Use
  Company Number: US-BRISTOL-MYERS SQUIBB COMPANY-12821187

PATIENT
  Age: 67 Year
  Sex: Female

DRUGS (4)
  1. ERBITUX [Suspect]
     Indication: COLON CANCER
     Dosage: LOADING DOSE OF 660 MG INITIATED.  RECEIVED 11 CC OR 22 MG TOTAL.
     Route: 042
     Dates: start: 20050111, end: 20050111
  2. BENADRYL [Concomitant]
     Indication: PREMEDICATION
     Route: 042
     Dates: start: 20050111, end: 20050111
  3. DECADRON [Concomitant]
     Indication: PREMEDICATION
     Route: 042
     Dates: start: 20050111, end: 20050111
  4. TAGAMET [Concomitant]
     Indication: PREMEDICATION
     Route: 042
     Dates: start: 20050111, end: 20050111

REACTIONS (1)
  - INFUSION RELATED REACTION [None]
